FAERS Safety Report 21700027 (Version 2)
Quarter: 2023Q4

REPORT INFORMATION
  Report Type: Spontaneous
  Country: US (occurrence: US)
  Receive Date: 20221208
  Receipt Date: 20231222
  Transmission Date: 20240110
  Serious: Yes (Death, Other)
  Sender: FDA-Public Use
  Company Number: US-TAKEDA-2022TUS094051

PATIENT

DRUGS (2)
  1. PREVACID [Suspect]
     Active Substance: LANSOPRAZOLE
     Indication: Gastrooesophageal reflux disease
     Dosage: 30 MILLIGRAM
     Route: 048
     Dates: start: 2006, end: 2009
  2. PRILOSEC [Suspect]
     Active Substance: OMEPRAZOLE MAGNESIUM
     Indication: Gastrooesophageal reflux disease
     Dosage: 30 MILLIGRAM
     Route: 048
     Dates: start: 2006, end: 2017

REACTIONS (3)
  - End stage renal disease [Fatal]
  - Chronic kidney disease [Fatal]
  - Renal failure [Fatal]
